FAERS Safety Report 18962807 (Version 1)
Quarter: 2021Q1

REPORT INFORMATION
  Report Type: Spontaneous
  Country: US (occurrence: US)
  Receive Date: 20210302
  Receipt Date: 20210302
  Transmission Date: 20210420
  Serious: Yes (Hospitalization)
  Sender: FDA-Public Use
  Company Number: None

PATIENT
  Age: 23 Year
  Sex: Male

DRUGS (1)
  1. SIROLIMUS ORAL SOLN 1MG/ML APOTEX [Suspect]
     Active Substance: SIROLIMUS
     Indication: CHRONIC MYELOID LEUKAEMIA
     Route: 048
     Dates: start: 202008

REACTIONS (1)
  - Transplant rejection [None]

NARRATIVE: CASE EVENT DATE: 202008
